FAERS Safety Report 8782702 (Version 1)
Quarter: 2012Q4

REPORT INFORMATION
  Report Type: Report from Study
  Country: US (occurrence: US)
  Receive Date: 20120913
  Receipt Date: 20120913
  Transmission Date: 20130627
  Serious: No
  Sender: FDA-Public Use
  Company Number: US-VERTEX PHARMACEUTICAL INC.-AE-2012-010126

PATIENT
  Age: 48 Year
  Sex: Female
  Weight: 66.36 kg

DRUGS (11)
  1. INCIVEK [Suspect]
     Indication: HEPATITIS C
     Route: 048
  2. PEGASYS [Concomitant]
     Indication: HEPATITIS C
  3. RIBAPAK PAK [Concomitant]
     Indication: HEPATITIS C
  4. LORAZEPAM [Concomitant]
  5. ESCITALOPRAM [Concomitant]
  6. TEMAZEPAM [Concomitant]
  7. CORTAID [Concomitant]
  8. GOODYS BACK AND BODY PAIN [Concomitant]
  9. CALCIUM [Concomitant]
  10. MULTI TAB [Concomitant]
  11. TYLENOL [Concomitant]

REACTIONS (4)
  - Agitation [Unknown]
  - Rash [Unknown]
  - Pruritus [Unknown]
  - Nausea [Unknown]
